FAERS Safety Report 14338886 (Version 1)
Quarter: 2017Q4

REPORT INFORMATION
  Report Type: Report from Study
  Country: IE (occurrence: IE)
  Receive Date: 20171229
  Receipt Date: 20171229
  Transmission Date: 20180321
  Serious: Yes (Hospitalization, Congenital Anomaly, Other)
  Sender: FDA-Public Use
  Company Number: IE-BAUSCH-BL-2017-034982

PATIENT
  Sex: Male
  Weight: 3.82 kg

DRUGS (10)
  1. NOVORAPID [Suspect]
     Active Substance: INSULIN ASPART
     Route: 063
  2. FOLIC ACID. [Concomitant]
     Active Substance: FOLIC ACID
     Indication: PROPHYLAXIS
     Route: 064
     Dates: start: 20160501, end: 20170204
  3. ELTROXIN [Concomitant]
     Active Substance: LEVOTHYROXINE
     Indication: HYPOTHYROIDISM
     Route: 064
     Dates: start: 20160501, end: 20170204
  4. METFORMIN (GENERIC) [Suspect]
     Active Substance: METFORMIN HYDROCHLORIDE
     Indication: PRODUCT USED FOR UNKNOWN INDICATION
     Route: 063
  5. NOVORAPID [Suspect]
     Active Substance: INSULIN ASPART
     Indication: TYPE 1 DIABETES MELLITUS
     Dosage: 1 (CARB COUNTING DOSE VARIES)
     Route: 064
     Dates: start: 20160501, end: 20170204
  6. NOVORAPID [Suspect]
     Active Substance: INSULIN ASPART
     Dosage: 1 (CARB COUNTING DOSE VARIES)
     Route: 063
  7. LANTUS [Suspect]
     Active Substance: INSULIN GLARGINE
     Route: 064
     Dates: end: 20170204
  8. LANTUS [Suspect]
     Active Substance: INSULIN GLARGINE
     Indication: TYPE 1 DIABETES MELLITUS
     Route: 064
     Dates: start: 20160501
  9. LANTUS [Suspect]
     Active Substance: INSULIN GLARGINE
     Route: 063
     Dates: start: 20170204
  10. ELTROXIN [Concomitant]
     Active Substance: LEVOTHYROXINE
     Route: 063

REACTIONS (5)
  - Convulsion neonatal [Recovered/Resolved]
  - Hypoglycaemia neonatal [Recovered/Resolved]
  - Ankyloglossia congenital [Recovered/Resolved]
  - Foetal exposure during pregnancy [Recovered/Resolved]
  - Exposure during breast feeding [Unknown]

NARRATIVE: CASE EVENT DATE: 20160501
